FAERS Safety Report 20246428 (Version 1)
Quarter: 2021Q4

REPORT INFORMATION
  Report Type: Spontaneous
  Country: US (occurrence: None)
  Receive Date: 20211228
  Receipt Date: 20211228
  Transmission Date: 20220303
  Serious: Yes (Other)
  Sender: FDA-Public Use
  Company Number: None

PATIENT
  Age: 31 Year
  Sex: Female
  Weight: 108 kg

DRUGS (3)
  1. AFRIN NO DRIP SEVERE CONGESTION [Suspect]
     Active Substance: OXYMETAZOLINE HYDROCHLORIDE
     Indication: Nasal congestion
     Dosage: OTHER QUANTITY : 3 SPRAY(S);?FREQUENCY : EVERY 12 HOURS;?
     Route: 055
     Dates: start: 20211226, end: 20211227
  2. MUCINEX [Concomitant]
     Active Substance: GUAIFENESIN
  3. BENADRYL [Concomitant]
     Active Substance: DIPHENHYDRAMINE HYDROCHLORIDE

REACTIONS (1)
  - Anosmia [None]

NARRATIVE: CASE EVENT DATE: 20211227
